FAERS Safety Report 7754070-3 (Version None)
Quarter: 2011Q3

REPORT INFORMATION
  Report Type: 
  Country: None (occurrence: None)
  Receive Date: 20110915
  Receipt Date: 20110128
  Transmission Date: 20111222
  Serious: No
  Sender: FDA-Public Use
  Company Number: US-BAYER-2011-011373

PATIENT
  Age: 67 Year
  Sex: Male

DRUGS (1)
  1. MAGNEVIST [Suspect]

REACTIONS (3)
  - URTICARIA [None]
  - PRURITUS [None]
  - THROAT TIGHTNESS [None]
